FAERS Safety Report 5198920-6 (Version None)
Quarter: 2007Q1

REPORT INFORMATION
  Report Type: 
  Country: None (occurrence: None)
  Receive Date: 20070104
  Receipt Date: 20061222
  Transmission Date: 20070707
  Serious: Yes (Hospitalization)
  Sender: FDA-Public Use
  Company Number: US-BRISTOL-MYERS SQUIBB COMPANY-13623616

PATIENT
  Age: 75 Year
  Sex: Female
  Weight: 6 kg

DRUGS (4)
  1. COUMADIN [Suspect]
  2. TYLENOL [Suspect]
     Indication: ARTHRALGIA
     Route: 048
     Dates: start: 20060705
  3. AMIODARONE HCL [Suspect]
  4. VITAMINS [Concomitant]

REACTIONS (2)
  - CONSTIPATION [None]
  - GASTROINTESTINAL STOMA COMPLICATION [None]
